FAERS Safety Report 21491256 (Version 1)
Quarter: 2022Q4

REPORT INFORMATION
  Report Type: Spontaneous
  Country: AT (occurrence: AT)
  Receive Date: 20221021
  Receipt Date: 20221021
  Transmission Date: 20230113
  Serious: Yes (Hospitalization, Other)
  Sender: FDA-Public Use
  Company Number: AT-009507513-2210AUT007345

PATIENT
  Age: 53 Year
  Sex: Male

DRUGS (4)
  1. PEMBROLIZUMAB [Suspect]
     Active Substance: PEMBROLIZUMAB
     Indication: Oesophageal adenocarcinoma
     Dosage: 200 MILLIGRAM, EVERY 14 DAYS
     Dates: end: 202206
  2. FLUOROURACIL\LEUCOVORIN CALCIUM\OXALIPLATIN [Suspect]
     Active Substance: FLUOROURACIL\LEUCOVORIN CALCIUM\OXALIPLATIN
     Indication: Oesophageal adenocarcinoma
     Dosage: OXALIPLATIN 85 MG/M2, FOLINIC ACID 400 MG/M2, FLUOROURACIL 400 MG/M2 BOLUS
     Dates: start: 202111, end: 202111
  3. FLUOROURACIL\LEUCOVORIN CALCIUM\OXALIPLATIN [Suspect]
     Active Substance: FLUOROURACIL\LEUCOVORIN CALCIUM\OXALIPLATIN
     Dosage: 2400 MG/M2, OVER 46 HOURS
     Dates: start: 202111, end: 202206
  4. LISINOPRIL [Concomitant]
     Active Substance: LISINOPRIL
     Dosage: 5 MG, ONCE DAILY

REACTIONS (14)
  - Chylothorax [Recovered/Resolved]
  - Cardiogenic shock [Recovered/Resolved]
  - Tumour compression [Unknown]
  - Pericardial effusion malignant [Recovered/Resolved]
  - Cardiac tamponade [Recovered/Resolved]
  - Malignant neoplasm progression [Recovering/Resolving]
  - Malignant neoplasm progression [Unknown]
  - Dyspnoea exertional [Recovered/Resolved]
  - Chest pain [Recovered/Resolved]
  - Pleural effusion [Recovered/Resolved]
  - Pleural effusion [Unknown]
  - Therapy partial responder [Unknown]
  - Drug hypersensitivity [Unknown]
  - Product use issue [Unknown]

NARRATIVE: CASE EVENT DATE: 20220601
